FAERS Safety Report 6634424-9 (Version None)
Quarter: 2010Q1

REPORT INFORMATION
  Report Type: 
  Country: None (occurrence: None)
  Receive Date: 20100311
  Receipt Date: 20100311
  Transmission Date: 20100710
  Serious: Yes (Other)
  Sender: FDA-Public Use
  Company Number: None

PATIENT
  Sex: Female
  Weight: 59.8748 kg

DRUGS (2)
  1. VALPROIC ACID [Suspect]
     Indication: AFFECTIVE DISORDER
     Dosage: ONE (4X DAILY) TEASPOON MOUTH
     Route: 048
     Dates: start: 20091206
  2. RISPERDAL [Concomitant]

REACTIONS (11)
  - CHILLS [None]
  - DEAFNESS [None]
  - DECREASED INTEREST [None]
  - DRY MOUTH [None]
  - INCREASED APPETITE [None]
  - LIBIDO DECREASED [None]
  - PAIN [None]
  - PSYCHOMOTOR HYPERACTIVITY [None]
  - SCREAMING [None]
  - THINKING ABNORMAL [None]
  - WEIGHT INCREASED [None]
